FAERS Safety Report 5648255-X (Version None)
Quarter: 2008Q1

REPORT INFORMATION
  Report Type: 
  Country: None (occurrence: None)
  Receive Date: 20080304
  Receipt Date: 20080228
  Transmission Date: 20080703
  Serious: Yes (Other)
  Sender: FDA-Public Use
  Company Number: JP-BRISTOL-MYERS SQUIBB COMPANY-14076608

PATIENT
  Age: 56 Year
  Sex: Female

DRUGS (3)
  1. BARACLUDE [Suspect]
     Indication: HEPATITIS B
     Route: 048
     Dates: start: 20070827, end: 20080205
  2. URSO 250 [Concomitant]
     Indication: HEPATITIS
     Route: 048
     Dates: start: 20070723
  3. ARIMIDEX [Concomitant]
     Indication: BREAST CANCER
     Route: 048
     Dates: start: 20071114

REACTIONS (1)
  - WHITE BLOOD CELL COUNT DECREASED [None]
